FAERS Safety Report 9426304 (Version 1)
Quarter: 2013Q3

REPORT INFORMATION
  Report Type: Spontaneous
  Country: US (occurrence: US)
  Receive Date: 20130730
  Receipt Date: 20130730
  Transmission Date: 20140515
  Serious: Yes (Other)
  Sender: FDA-Public Use
  Company Number: US-BRISTOL-MYERS SQUIBB COMPANY-19149343

PATIENT
  Age: 76 Year
  Sex: Male
  Weight: 84.3 kg

DRUGS (1)
  1. METFORMIN HCL [Suspect]

REACTIONS (1)
  - Renal failure [Unknown]
